FAERS Safety Report 25224253 (Version 1)
Quarter: 2025Q2

REPORT INFORMATION
  Report Type: Spontaneous
  Country: US (occurrence: US)
  Receive Date: 20250422
  Receipt Date: 20250422
  Transmission Date: 20250717
  Serious: Yes (Death, Other)
  Sender: TAKEDA
  Company Number: US-TAKEDA-2025TUS038207

PATIENT
  Age: 61 Year
  Sex: Male

DRUGS (1)
  1. VONVENDI [Suspect]
     Active Substance: VON WILLEBRAND FACTOR (RECOMBINANT)
     Indication: Product used for unknown indication

REACTIONS (13)
  - Cardiac arrest [Fatal]
  - Respiratory arrest [Fatal]
  - Haemothorax [Unknown]
  - Chest wall haematoma [Unknown]
  - Loss of consciousness [Unknown]
  - Aortic arteriosclerosis [Unknown]
  - Pulmonary oedema [Unknown]
  - Post procedural complication [Unknown]
  - Procedural haemorrhage [Unknown]
  - Cardiomegaly [Unknown]
  - Arteriosclerosis [Unknown]
  - Coronary artery disease [Unknown]
  - Haemoptysis [Unknown]

NARRATIVE: CASE EVENT DATE: 20241209
